FAERS Safety Report 17263077 (Version 1)
Quarter: 2020Q1

REPORT INFORMATION
  Report Type: Spontaneous
  Country: US (occurrence: US)
  Receive Date: 20200110
  Receipt Date: 20200110
  Transmission Date: 20200409
  Serious: Yes (Hospitalization)
  Sender: FDA-Public Use
  Company Number: None

PATIENT
  Age: 44 Year
  Sex: Female
  Weight: 83.25 kg

DRUGS (3)
  1. FELODEPINE 2.5 MG QD [Concomitant]
     Dates: start: 20191205
  2. LOSARTAN 100 MG QD [Concomitant]
     Dates: start: 20191205
  3. PEMBROLIZUMAB. [Suspect]
     Active Substance: PEMBROLIZUMAB
     Indication: CERVIX CARCINOMA
     Dosage: ?          OTHER FREQUENCY:Q 21 DAYS;?
     Route: 042
     Dates: start: 20190322, end: 20200108

REACTIONS (2)
  - Blood creatinine increased [None]
  - Blood potassium decreased [None]

NARRATIVE: CASE EVENT DATE: 20200109
